FAERS Safety Report 6075212-4 (Version None)
Quarter: 2009Q1

REPORT INFORMATION
  Report Type: 
  Country: None (occurrence: None)
  Receive Date: 20090212
  Receipt Date: 20090204
  Transmission Date: 20090719
  Serious: Yes (Death, Hospitalization)
  Sender: FDA-Public Use
  Company Number: SE-AVENTIS-200911203GDDC

PATIENT
  Sex: Female

DRUGS (5)
  1. TAXOTERE [Suspect]
  2. FLUOROURACIL [Concomitant]
  3. EPIRUBICIN [Concomitant]
  4. CYCLOPHOSPHAMIDE [Concomitant]
  5. TROMBYL [Concomitant]

REACTIONS (3)
  - LIVER FUNCTION TEST ABNORMAL [None]
  - PULMONARY HAEMORRHAGE [None]
  - PULMONARY OEDEMA [None]
